FAERS Safety Report 15397780 (Version 1)
Quarter: 2018Q3

REPORT INFORMATION
  Report Type: Spontaneous
  Country: US (occurrence: US)
  Receive Date: 20180918
  Receipt Date: 20180918
  Transmission Date: 20181010
  Serious: Yes (Hospitalization, Other)
  Sender: FDA-Public Use
  Company Number: US-OTSUKA-2018_019600

PATIENT

DRUGS (12)
  1. ABILIFY [Suspect]
     Active Substance: ARIPIPRAZOLE
     Indication: ALCOHOL ABUSE
  2. ABILIFY [Suspect]
     Active Substance: ARIPIPRAZOLE
     Indication: MAJOR DEPRESSION
     Dosage: 10 MG, QD
     Route: 065
     Dates: start: 201601, end: 201709
  3. ABILIFY [Suspect]
     Active Substance: ARIPIPRAZOLE
     Indication: ANXIETY
  4. ABILIFY [Suspect]
     Active Substance: ARIPIPRAZOLE
     Indication: AGITATION
  5. ABILIFY [Suspect]
     Active Substance: ARIPIPRAZOLE
     Indication: IRRITABILITY
  6. ABILIFY [Suspect]
     Active Substance: ARIPIPRAZOLE
     Indication: POST-TRAUMATIC STRESS DISORDER
  7. ABILIFY [Suspect]
     Active Substance: ARIPIPRAZOLE
     Indication: OBSESSIVE-COMPULSIVE DISORDER
  8. ABILIFY [Suspect]
     Active Substance: ARIPIPRAZOLE
     Indication: INSOMNIA
  9. ABILIFY [Suspect]
     Active Substance: ARIPIPRAZOLE
     Indication: SOCIAL ANXIETY DISORDER
  10. ABILIFY [Suspect]
     Active Substance: ARIPIPRAZOLE
     Indication: PERSONALITY DISORDER
  11. ABILIFY [Suspect]
     Active Substance: ARIPIPRAZOLE
     Indication: SUBSTANCE ABUSE
  12. ABILIFY [Suspect]
     Active Substance: ARIPIPRAZOLE
     Indication: BIPOLAR DISORDER

REACTIONS (11)
  - Compulsive shopping [Not Recovered/Not Resolved]
  - Gambling disorder [Not Recovered/Not Resolved]
  - Compulsive hoarding [Not Recovered/Not Resolved]
  - Mental disorder [Unknown]
  - Suicide attempt [Not Recovered/Not Resolved]
  - Bankruptcy [Unknown]
  - Product use in unapproved indication [Unknown]
  - Sexual dysfunction [Not Recovered/Not Resolved]
  - Economic problem [Unknown]
  - Obsessive-compulsive disorder [Unknown]
  - Suicidal ideation [Not Recovered/Not Resolved]

NARRATIVE: CASE EVENT DATE: 201601
